FAERS Safety Report 17335961 (Version 3)
Quarter: 2020Q2

REPORT INFORMATION
  Report Type: Spontaneous
  Country: SK (occurrence: SK)
  Receive Date: 20200128
  Receipt Date: 20200407
  Transmission Date: 20200713
  Serious: Yes (Hospitalization, Other)
  Sender: FDA-Public Use
  Company Number: SK-ACCORD-170854

PATIENT
  Age: 44 Year
  Sex: Female

DRUGS (28)
  1. CARBAMAZEPINE. [Suspect]
     Active Substance: CARBAMAZEPINE
     Indication: AFFECTIVE DISORDER
     Dosage: UNK
  2. MIRTAZAPINE. [Suspect]
     Active Substance: MIRTAZAPINE
     Indication: ANTIDEPRESSANT THERAPY
     Dosage: UNK
  3. TIAPRIDE [Suspect]
     Active Substance: TIAPRIDE
     Indication: PSYCHOTHERAPY
     Dosage: UNK
  4. AMITRIPTYLINE [Suspect]
     Active Substance: AMITRIPTYLINE
     Indication: ANTIDEPRESSANT THERAPY
     Dosage: UNK
  5. BUPROPION/BUPROPION HYDROCHLORIDE [Suspect]
     Active Substance: BUPROPION HYDROCHLORIDE
     Indication: ANTIDEPRESSANT THERAPY
     Dosage: UNK
  6. FLUPENTIXOL/FLUPENTIXOL DECANOATE/FLUPENTIXOL DIHYDROCHLORIDE [Suspect]
     Active Substance: FLUPENTIXOL
     Indication: PSYCHOTHERAPY
     Dosage: UNK
  7. ZIPRASIDONE/ZIPRASIDONE HYDROCHLORIDE/ZIPRASIDONE MESILATE [Suspect]
     Active Substance: ZIPRASIDONE HYDROCHLORIDE\ZIPRASIDONE MESYLATE
     Indication: PSYCHOTHERAPY
     Dosage: UNK
  8. BUSPIRONE [Suspect]
     Active Substance: BUSPIRONE HYDROCHLORIDE
     Indication: ANXIOLYTIC THERAPY
     Dosage: UNK
  9. AGOMELATINE [Suspect]
     Active Substance: AGOMELATINE
     Indication: ANTIDEPRESSANT THERAPY
     Dosage: UNK
  10. RISPERIDONE. [Suspect]
     Active Substance: RISPERIDONE
     Indication: PERSONALITY DISORDER
     Dosage: UNK, SMALL DOSE
  11. LITHIUM. [Suspect]
     Active Substance: LITHIUM
     Indication: AFFECTIVE DISORDER
     Dosage: UNK
  12. ARIPIPRAZOLE. [Suspect]
     Active Substance: ARIPIPRAZOLE
     Indication: PSYCHOTHERAPY
     Dosage: UNK
  13. BROMAZEPAM [Suspect]
     Active Substance: BROMAZEPAM
     Indication: ANXIOLYTIC THERAPY
     Dosage: UNK
  14. VALPROIC ACID. [Suspect]
     Active Substance: VALPROIC ACID
     Indication: AFFECTIVE DISORDER
     Dosage: UNK
  15. CLONAZEPAM. [Suspect]
     Active Substance: CLONAZEPAM
     Indication: ANXIOLYTIC THERAPY
     Dosage: UNK
  16. CHLORPROTHIXENE [Suspect]
     Active Substance: CHLORPROTHIXENE
     Indication: PSYCHOTHERAPY
     Dosage: UNK
  17. FLUNITRAZEPAM [Suspect]
     Active Substance: FLUNITRAZEPAM
     Indication: ANXIOLYTIC THERAPY
     Dosage: UNK
  18. LEVOMEPROMAZINE [Suspect]
     Active Substance: LEVOMEPROMAZINE
     Indication: PSYCHOTHERAPY
     Dosage: UNK
  19. MIANSERIN [Suspect]
     Active Substance: MIANSERIN
     Indication: ANTIDEPRESSANT THERAPY
     Dosage: UNK
  20. AMISULPRIDE [Suspect]
     Active Substance: AMISULPRIDE
     Indication: PSYCHOTHERAPY
     Dosage: UNK
  21. QUETIAPINE. [Suspect]
     Active Substance: QUETIAPINE
     Indication: PSYCHOTHERAPY
     Dosage: UNK
  22. TRAZODONE [Suspect]
     Active Substance: TRAZODONE HYDROCHLORIDE
     Indication: ANTIDEPRESSANT THERAPY
     Dosage: UNK
  23. ALPRAZOLAM. [Suspect]
     Active Substance: ALPRAZOLAM
     Indication: ANXIOLYTIC THERAPY
     Dosage: UNK
  24. CITALOPRAM [Suspect]
     Active Substance: CITALOPRAM HYDROBROMIDE
     Indication: ANTIDEPRESSANT THERAPY
     Dosage: UNK
  25. VALPROIC ACID. [Suspect]
     Active Substance: VALPROIC ACID
     Indication: AFFECTIVE DISORDER
  26. SERTRALINE [Suspect]
     Active Substance: SERTRALINE HYDROCHLORIDE
     Indication: ANTIDEPRESSANT THERAPY
     Dosage: UNK
  27. DULOXETINE. [Suspect]
     Active Substance: DULOXETINE
     Indication: ANTIDEPRESSANT THERAPY
     Dosage: UNK
  28. VENLAFAXINE/VENLAFAXINE HYDROCHLORIDE [Suspect]
     Active Substance: VENLAFAXINE HYDROCHLORIDE
     Indication: ANTIDEPRESSANT THERAPY
     Dosage: UNK

REACTIONS (7)
  - Extrapyramidal disorder [Unknown]
  - Weight increased [Unknown]
  - Type 2 diabetes mellitus [Unknown]
  - Suicidal ideation [Recovering/Resolving]
  - Vertigo [Unknown]
  - Drug ineffective [Unknown]
  - Fatigue [Unknown]
